FAERS Safety Report 6834268-9 (Version None)
Quarter: 2010Q3

REPORT INFORMATION
  Report Type: 
  Country: None (occurrence: None)
  Receive Date: 20100712
  Receipt Date: 20070422
  Transmission Date: 20110219
  Serious: No
  Sender: FDA-Public Use
  Company Number: US-PFIZER INC-2007033995

PATIENT
  Sex: Female
  Weight: 95.71 kg

DRUGS (4)
  1. CHANTIX [Suspect]
     Dates: start: 20070416
  2. PAXIL [Concomitant]
     Indication: DEPRESSION
  3. LEVOXYL [Concomitant]
     Indication: HYPOTHYROIDISM
  4. ALBUTEROL [Concomitant]
     Indication: ASTHMA

REACTIONS (4)
  - DYSPNOEA [None]
  - HYPOVENTILATION [None]
  - RESPIRATORY RATE INCREASED [None]
  - TREMOR [None]
